FAERS Safety Report 4798420-9 (Version None)
Quarter: 2005Q4

REPORT INFORMATION
  Report Type: 
  Country: None (occurrence: None)
  Receive Date: 20051014
  Receipt Date: 20050701
  Transmission Date: 20060501
  Serious: Yes (Life-Threatening)
  Sender: FDA-Public Use
  Company Number: JP-SOLVAY-00305002189

PATIENT
  Age: 11671 Day
  Sex: Female
  Weight: 43 kg

DRUGS (7)
  1. DOGMATYL [Concomitant]
     Indication: CERVICOBRACHIAL SYNDROME
     Dosage: DAILY DOSE: 150 MILLIGRAM(S)
     Route: 048
     Dates: start: 20050603
  2. DEPROMEL 25 [Suspect]
     Indication: CERVICOBRACHIAL SYNDROME
     Dosage: DAILY DOSE: 50 MILLIGRAM(S)
     Route: 048
     Dates: start: 20050603
  3. DEPAS [Concomitant]
     Indication: CERVICOBRACHIAL SYNDROME
     Dosage: DAILY DOSE: 2 MILLIGRAM(S)
     Route: 048
     Dates: start: 20040608
  4. MOHRUS TAPE [Concomitant]
     Indication: CERVICOBRACHIAL SYNDROME
     Dosage: DAILY DOSE:  UNKNOWN
     Route: 061
     Dates: start: 20040608
  5. DIBCALSOR [Concomitant]
     Indication: INTERVERTEBRAL DISC PROTRUSION
     Dosage: DOSAGE: 5 ML, ONE TIME PER MONTH
     Route: 065
     Dates: start: 20040816
  6. DEXAMETHASONE ACETATE [Concomitant]
     Indication: CERVICOBRACHIAL SYNDROME
     Route: 065
     Dates: start: 20030331
  7. MEPIVACAINE HCL [Concomitant]
     Indication: EPIDURAL ANAESTHESIA
     Route: 065
     Dates: start: 20030124

REACTIONS (2)
  - ANAPHYLACTOID REACTION [None]
  - NAUSEA [None]
